FAERS Safety Report 11141457 (Version 1)
Quarter: 2015Q2

REPORT INFORMATION
  Report Type: Spontaneous
  Country: US (occurrence: US)
  Receive Date: 20150527
  Receipt Date: 20150527
  Transmission Date: 20150821
  Serious: No
  Sender: FDA-Public Use
  Company Number: US-ELI_LILLY_AND_COMPANY-US201504009764

PATIENT
  Age: 71 Year
  Sex: Male

DRUGS (12)
  1. AXIRON [Suspect]
     Active Substance: TESTOSTERONE
     Dosage: 150 MG, QD
     Route: 065
  2. AXIRON [Suspect]
     Active Substance: TESTOSTERONE
     Dosage: 180 MG, QD
     Route: 065
  3. CIALIS [Concomitant]
     Active Substance: TADALAFIL
     Dosage: UNK, UNKNOWN
     Route: 065
  4. SINGULAIR [Concomitant]
     Active Substance: MONTELUKAST SODIUM
     Dosage: UNK, UNKNOWN
     Route: 065
  5. AXIRON [Suspect]
     Active Substance: TESTOSTERONE
     Dosage: 90 MG, QD
     Route: 065
  6. SYNTHROID [Concomitant]
     Active Substance: LEVOTHYROXINE SODIUM
     Dosage: UNK, UNKNOWN
     Route: 065
  7. AXIRON [Suspect]
     Active Substance: TESTOSTERONE
     Dosage: 120 MG, QD
     Route: 065
  8. AXIRON [Suspect]
     Active Substance: TESTOSTERONE
     Dosage: 150 MG QD
     Route: 065
  9. AXIRON [Suspect]
     Active Substance: TESTOSTERONE
     Dosage: 120 MG, QD
     Route: 065
     Dates: start: 20150328
  10. ATORVASTATIN [Concomitant]
     Active Substance: ATORVASTATIN
     Dosage: UNK, UNKNOWN
     Route: 065
  11. AXIRON [Suspect]
     Active Substance: TESTOSTERONE
     Indication: BLOOD TESTOSTERONE DECREASED
     Dosage: 60 MG, QD
     Route: 065
  12. OMEPRAZOLE. [Concomitant]
     Active Substance: OMEPRAZOLE
     Dosage: UNK, UNKNOWN
     Route: 065

REACTIONS (4)
  - Aggression [Recovering/Resolving]
  - Body temperature increased [Recovering/Resolving]
  - Mood altered [Recovering/Resolving]
  - Prescribed overdose [Recovered/Resolved]
